FAERS Safety Report 7273600-1 (Version None)
Quarter: 2011Q1

REPORT INFORMATION
  Report Type: 
  Country: None (occurrence: None)
  Receive Date: 20110203
  Receipt Date: 20100729
  Transmission Date: 20110831
  Serious: No
  Sender: FDA-Public Use
  Company Number: US-ABBOTT-10P-163-0658652-00

PATIENT
  Sex: Female
  Weight: 63.56 kg

DRUGS (6)
  1. SYNTHROID [Suspect]
     Dates: start: 20100101
  2. SYNTHROID [Suspect]
     Indication: HYPOTHYROIDISM
     Dates: start: 20020101, end: 20070101
  3. SYNTHROID [Suspect]
     Dates: start: 20070101, end: 20091101
  4. SYNTHROID [Suspect]
     Dates: start: 20091101, end: 20100101
  5. LOVAZA [Concomitant]
     Indication: SUPPLEMENTATION THERAPY
  6. SYNTHROID [Suspect]
     Dates: start: 20100101

REACTIONS (10)
  - LOW DENSITY LIPOPROTEIN INCREASED [None]
  - MUSCLE SPASMS [None]
  - THYROID FUNCTION TEST ABNORMAL [None]
  - GLOMERULONEPHRITIS MEMBRANOUS [None]
  - BLOOD ALBUMIN DECREASED [None]
  - PAIN [None]
  - PROTEIN URINE PRESENT [None]
  - FEELING JITTERY [None]
  - BLOOD CHOLESTEROL INCREASED [None]
  - PALPITATIONS [None]
